FAERS Safety Report 26062939 (Version 1)
Quarter: 2025Q4

REPORT INFORMATION
  Report Type: Spontaneous
  Country: US (occurrence: US)
  Receive Date: 20251119
  Receipt Date: 20251119
  Transmission Date: 20260119
  Serious: No
  Sender: LEADING PHARMA
  Company Number: US-LEADINGPHARMA-US-2025LEASPO00206

PATIENT
  Age: 82 Year
  Sex: Female

DRUGS (3)
  1. DOXEPIN HYDROCHLORIDE [Suspect]
     Active Substance: DOXEPIN HYDROCHLORIDE
     Indication: Dementia
     Route: 065
  2. LEXAPRO [Concomitant]
     Active Substance: ESCITALOPRAM OXALATE
     Indication: Anxiety
     Route: 065
  3. LEXAPRO [Concomitant]
     Active Substance: ESCITALOPRAM OXALATE
     Indication: Insomnia

REACTIONS (6)
  - Lethargy [Unknown]
  - Confusional state [Unknown]
  - Hypersomnia [Unknown]
  - Anxiety [Unknown]
  - Restlessness [Unknown]
  - Product use in unapproved indication [Unknown]
